FAERS Safety Report 24170569 (Version 2)
Quarter: 2024Q3

REPORT INFORMATION
  Report Type: Report from Study
  Country: US (occurrence: US)
  Receive Date: 20240803
  Receipt Date: 20240809
  Transmission Date: 20241016
  Serious: Yes (Other)
  Sender: ABBVIE
  Company Number: US-ABBVIE-5862420

PATIENT
  Sex: Female

DRUGS (1)
  1. HUMIRA [Suspect]
     Active Substance: ADALIMUMAB
     Indication: Psoriatic arthropathy
     Route: 058
     Dates: start: 20181005

REACTIONS (5)
  - Blindness [Not Recovered/Not Resolved]
  - Swelling [Unknown]
  - Weight increased [Not Recovered/Not Resolved]
  - Oedema [Unknown]
  - Joint swelling [Unknown]
